FAERS Safety Report 13033246 (Version 3)
Quarter: 2017Q1

REPORT INFORMATION
  Report Type: Report from Study
  Country: US (occurrence: US)
  Receive Date: 20161216
  Receipt Date: 20170130
  Transmission Date: 20170428
  Serious: Yes (Life-Threatening, Hospitalization, Other)
  Sender: FDA-Public Use
  Company Number: US-BRISTOL-MYERS SQUIBB COMPANY-BMS-2016-080153

PATIENT
  Age: 67 Year
  Sex: Male

DRUGS (4)
  1. IPILIMUMAB [Suspect]
     Active Substance: IPILIMUMAB
     Indication: MYELODYSPLASTIC SYNDROME
     Dosage: 3 MG/KG, Q3WK
     Route: 042
     Dates: start: 20160914
  2. 5-AZACYTIDINE [Suspect]
     Active Substance: AZACITIDINE
     Indication: MYELODYSPLASTIC SYNDROME
     Dosage: UNK
     Route: 065
  3. NIVOLUMAB [Suspect]
     Active Substance: NIVOLUMAB
     Indication: MYELODYSPLASTIC SYNDROME
     Dosage: UNK
     Route: 065
  4. IPILIMUMAB [Suspect]
     Active Substance: IPILIMUMAB
     Indication: PRODUCT USED FOR UNKNOWN INDICATION
     Dosage: 3 MG/KG, UNK
     Route: 065
     Dates: start: 20161111

REACTIONS (4)
  - Lung infection [Recovering/Resolving]
  - Pyrexia [Recovered/Resolved]
  - Autoimmune disorder [Recovering/Resolving]
  - Febrile neutropenia [Recovering/Resolving]

NARRATIVE: CASE EVENT DATE: 20160922
